FAERS Safety Report 26132987 (Version 1)
Quarter: 2025Q4

REPORT INFORMATION
  Report Type: Spontaneous
  Country: GB (occurrence: GB)
  Receive Date: 20251209
  Receipt Date: 20251209
  Transmission Date: 20260118
  Serious: Yes (Other)
  Sender: ASTELLAS
  Company Number: None

PATIENT
  Age: 51 Year
  Sex: Male
  Weight: 82 kg

DRUGS (5)
  1. MIRABEGRON [Suspect]
     Active Substance: MIRABEGRON
     Indication: Ill-defined disorder
     Dosage: MODIFIED-RELEASE TABLETS (TPP YC)
     Route: 065
     Dates: start: 20251202
  2. TAMSULOSIN HYDROCHLORIDE [Concomitant]
     Active Substance: TAMSULOSIN HYDROCHLORIDE
     Indication: Ill-defined disorder
     Dosage: TAKE ONE DAILY. TPP YC
     Route: 065
     Dates: start: 20251111
  3. MIRABEGRON [Concomitant]
     Active Substance: MIRABEGRON
     Indication: Ill-defined disorder
     Dosage: TAKE ONE DAILY. TPP YC
     Route: 065
     Dates: start: 20250519, end: 20251202
  4. LANSOPRAZOLE [Concomitant]
     Active Substance: LANSOPRAZOLE
     Indication: Ill-defined disorder
     Dosage: (TPP YC). TAKE ONE ONCE DAILY
     Route: 065
     Dates: start: 20251111
  5. ATORVASTATIN [Concomitant]
     Active Substance: ATORVASTATIN
     Indication: Ill-defined disorder
     Dosage: TAKE ONE AT NIGHT. TPP YC
     Route: 065
     Dates: start: 20241010

REACTIONS (1)
  - Essential hypertension [Recovering/Resolving]

NARRATIVE: CASE EVENT DATE: 20251202
